FAERS Safety Report 5206306-0 (Version None)
Quarter: 2007Q1

REPORT INFORMATION
  Report Type: 
  Country: None (occurrence: None)
  Receive Date: 20070111
  Receipt Date: 20061214
  Transmission Date: 20070707
  Serious: Yes (Hospitalization)
  Sender: FDA-Public Use
  Company Number: JP-BOEHRINGER INGELHEIM PHARMACEUTICALS, INC.-2006-BP-14299NB

PATIENT
  Sex: Female
  Weight: 43 kg

DRUGS (9)
  1. MICARDIS [Suspect]
     Indication: HYPERTENSION
     Route: 048
     Dates: end: 20061125
  2. TAKEPRON [Concomitant]
     Route: 048
     Dates: end: 20061102
  3. LASIX [Concomitant]
     Route: 065
     Dates: end: 20061102
  4. TETUCUR S [Concomitant]
     Route: 065
     Dates: end: 20061102
  5. RIVOTRIL [Concomitant]
     Route: 065
     Dates: end: 20061102
  6. NORVASC [Concomitant]
     Route: 065
     Dates: end: 20061102
  7. THEOLONG [Concomitant]
     Route: 065
     Dates: end: 20061102
  8. SUCRALFATE [Concomitant]
     Route: 065
     Dates: end: 20061102
  9. CYANOCOBALAMIN [Concomitant]
     Route: 065
     Dates: end: 20061102

REACTIONS (4)
  - ASTHMA [None]
  - BLOOD CREATINE PHOSPHOKINASE INCREASED [None]
  - MYALGIA [None]
  - PANCREATITIS ACUTE [None]
